FAERS Safety Report 9374375 (Version 2)
Quarter: 2013Q3

REPORT INFORMATION
  Report Type: Spontaneous
  Country: US (occurrence: US)
  Receive Date: 20130628
  Receipt Date: 20130731
  Transmission Date: 20140515
  Serious: Yes (Hospitalization, Other)
  Sender: FDA-Public Use
  Company Number: PHEH2013US013642

PATIENT
  Sex: Female

DRUGS (6)
  1. AFINITOR [Suspect]
     Indication: BREAST CANCER
     Dosage: 10 MG, QD
     Route: 048
     Dates: start: 201305
  2. AFINITOR [Suspect]
     Dosage: 10 MG, QD
     Route: 048
  3. EXEMESTANE [Concomitant]
     Indication: BREAST CANCER
  4. LEVOTHYROXINE [Concomitant]
     Indication: THYROID DISORDER
  5. ATENOLOL [Concomitant]
     Indication: HYPERTENSION
  6. LOSARTAN [Concomitant]
     Indication: HYPERTENSION

REACTIONS (8)
  - Myocardial infarction [Unknown]
  - Dyspepsia [Unknown]
  - Hyperhidrosis [Unknown]
  - Loss of consciousness [Unknown]
  - Presyncope [Unknown]
  - Stomatitis [Unknown]
  - Mucosal inflammation [Unknown]
  - Fatigue [Unknown]
